FAERS Safety Report 17938491 (Version 1)
Quarter: 2020Q2

REPORT INFORMATION
  Report Type: Spontaneous
  Country: US (occurrence: US)
  Receive Date: 20200624
  Receipt Date: 20200624
  Transmission Date: 20200714
  Serious: No
  Sender: FDA-Public Use
  Company Number: US-TEVA-2020-US-1791628

PATIENT
  Age: 69 Year
  Sex: Male
  Weight: 105.21 kg

DRUGS (2)
  1. FEXOFENADINE [Suspect]
     Active Substance: FEXOFENADINE HYDROCHLORIDE
     Indication: PARANASAL SINUS DISCOMFORT
     Dosage: FEXOFENADINE 180 MG 571 (FEXOFENADINE) TABLET {LOT # 0CR0501 (44F468)}
     Route: 048
     Dates: start: 20200612, end: 20200614
  2. FLONASE [Concomitant]
     Active Substance: FLUTICASONE PROPIONATE
     Dates: start: 202006

REACTIONS (3)
  - Therapeutic product effect incomplete [Unknown]
  - Product administered to patient of inappropriate age [Unknown]
  - Drug effective for unapproved indication [Unknown]

NARRATIVE: CASE EVENT DATE: 20200612
